FAERS Safety Report 5940715-7 (Version None)
Quarter: 2008Q4

REPORT INFORMATION
  Report Type: 
  Country: None (occurrence: None)
  Receive Date: 20081103
  Receipt Date: 20081103
  Transmission Date: 20090506
  Serious: Yes (Hospitalization)
  Sender: FDA-Public Use
  Company Number: None

PATIENT
  Age: 61 Year
  Sex: Male
  Weight: 71.3962 kg

DRUGS (14)
  1. GEMCITABINE HCL [Suspect]
     Indication: PANCREATIC CARCINOMA METASTATIC
     Dosage: 1000MG/M2, D1+15 OF CYCL
     Dates: start: 20081015, end: 20081017
  2. FLUOROURACIL [Suspect]
     Dosage: 2400MG/M2 D1+15 OF CYCL
     Dates: start: 20081015, end: 20081017
  3. BEVACIZUMAB [Suspect]
     Dates: end: 20080924
  4. COMPAZINE [Concomitant]
  5. CREON [Concomitant]
  6. EMLA [Concomitant]
  7. METHATDONE [Concomitant]
  8. MIRALAX [Concomitant]
  9. VICODIN [Concomitant]
  10. ALDACTONE [Concomitant]
  11. LOVENOX [Concomitant]
  12. MARINOL [Concomitant]
  13. METOCLOPRAMIDE [Concomitant]
  14. ZOFRAN [Concomitant]

REACTIONS (6)
  - ANOREXIA [None]
  - ASTHENIA [None]
  - DEHYDRATION [None]
  - HYPOPHAGIA [None]
  - NAUSEA [None]
  - VOMITING [None]
